FAERS Safety Report 14947648 (Version 1)
Quarter: 2018Q2

REPORT INFORMATION
  Report Type: Spontaneous
  Country: US (occurrence: US)
  Receive Date: 20180529
  Receipt Date: 20180529
  Transmission Date: 20180711
  Serious: Yes (Other)
  Sender: FDA-Public Use
  Company Number: US-SAREPTA THERAPEUTICS, INC-SRP-000075-2018

PATIENT
  Age: 6 Year
  Sex: Male
  Weight: 25.6 kg

DRUGS (4)
  1. PREDNISOLONE. [Concomitant]
     Active Substance: PREDNISOLONE
     Indication: PRODUCT USED FOR UNKNOWN INDICATION
     Dosage: UNK
     Route: 065
  2. EXONDYS 51 [Suspect]
     Active Substance: ETEPLIRSEN
     Dosage: 700 MG, UNK
     Route: 065
     Dates: start: 20170824, end: 20180504
  3. EXONDYS 51 [Suspect]
     Active Substance: ETEPLIRSEN
     Indication: DUCHENNE MUSCULAR DYSTROPHY
     Dosage: 705 MG (60MG/10ML), WEEKLY
     Route: 042
     Dates: start: 20170824, end: 20180504
  4. EXONDYS 51 [Suspect]
     Active Substance: ETEPLIRSEN
     Dosage: 705 MG, WEEKLY
     Route: 042

REACTIONS (4)
  - Heart rate decreased [Recovered/Resolved]
  - Cough [Recovered/Resolved]
  - Treatment noncompliance [Unknown]
  - Chest pain [Recovered/Resolved]

NARRATIVE: CASE EVENT DATE: 20180504
